FAERS Safety Report 6086418-2 (Version None)
Quarter: 2009Q1

REPORT INFORMATION
  Report Type: 
  Country: None (occurrence: None)
  Receive Date: 20090217
  Receipt Date: 20090202
  Transmission Date: 20090719
  Serious: Yes (Death)
  Sender: FDA-Public Use
  Company Number: CHPA2009US01804

PATIENT
  Age: 60 Year
  Sex: Female

DRUGS (5)
  1. DIPHENHYDRAMINE HCL [Suspect]
     Dosage: ORAL
     Route: 048
  2. AMLODIPINE BESYLATE AND BENAZEPRIL HCL [Suspect]
     Dosage: ORAL
     Route: 048
  3. PAROXETINE HCL [Suspect]
     Dosage: ORAL
     Route: 048
  4. PHENOTHIAZINE (PHENOTHIAZINE) [Suspect]
     Dosage: ORAL
     Route: 048
  5. SUCRALFATE [Suspect]
     Dosage: ORAL
     Route: 048

REACTIONS (1)
  - COMPLETED SUICIDE [None]
